FAERS Safety Report 8697989 (Version 3)
Quarter: 2013Q4

REPORT INFORMATION
  Report Type: Spontaneous
  Country: US (occurrence: US)
  Receive Date: 20120801
  Receipt Date: 20131101
  Transmission Date: 20140711
  Serious: Yes (Hospitalization)
  Sender: FDA-Public Use
  Company Number: US-009507513-1207USA011638

PATIENT
  Age: 61 Year
  Sex: Female
  Weight: 66.67 kg

DRUGS (7)
  1. JANUMET [Suspect]
     Indication: DIABETES MELLITUS
     Dosage: 500MG/50 MG, BID
     Route: 048
  2. JANUMET [Suspect]
     Dosage: 500MG/50 MG, QD
     Route: 048
  3. LISINOPRIL [Concomitant]
  4. TRILIPIX [Concomitant]
  5. VITAMIN D (UNSPECIFIED) [Concomitant]
  6. PREMARIN [Concomitant]
  7. ASPIRIN [Concomitant]

REACTIONS (1)
  - Pancreatitis acute [Recovered/Resolved]
